FAERS Safety Report 23548104 (Version 1)
Quarter: 2024Q1

REPORT INFORMATION
  Report Type: Spontaneous
  Country: BB (occurrence: BB)
  Receive Date: 20240221
  Receipt Date: 20240221
  Transmission Date: 20240409
  Serious: Yes (Death, Hospitalization)
  Sender: FDA-Public Use
  Company Number: BB-002147023-NVSC2024BB035890

PATIENT
  Age: 66 Year
  Sex: Male

DRUGS (1)
  1. COSENTYX [Suspect]
     Active Substance: SECUKINUMAB
     Indication: Psoriasis
     Dosage: 150 MG, QMO
     Route: 065

REACTIONS (2)
  - Death [Fatal]
  - Cardiac disorder [Unknown]
